FAERS Safety Report 5739473-0 (Version None)
Quarter: 2008Q2

REPORT INFORMATION
  Report Type: 
  Country: None (occurrence: None)
  Receive Date: 20080515
  Receipt Date: 20080507
  Transmission Date: 20081010
  Serious: Yes (Hospitalization, Other)
  Sender: FDA-Public Use
  Company Number: PHHO2008KR05854

PATIENT
  Age: 47 Year
  Sex: Male
  Weight: 86.4 kg

DRUGS (2)
  1. TASIGNA [Suspect]
     Indication: CHRONIC MYELOID LEUKAEMIA
     Dosage: 800MG DAILY
     Route: 048
     Dates: start: 20080128, end: 20080411
  2. TASIGNA [Suspect]
     Dosage: UNK, NO TREATMENT
     Dates: start: 20080412

REACTIONS (2)
  - PYREXIA [None]
  - THROMBOCYTOPENIA [None]
